FAERS Safety Report 9900336 (Version 2)
Quarter: 2014Q1

REPORT INFORMATION
  Report Type: Report from Study
  Country: US (occurrence: US)
  Receive Date: 20140216
  Receipt Date: 20140216
  Transmission Date: 20141002
  Serious: Yes (Death)
  Sender: FDA-Public Use
  Company Number: US-ROCHE-1295781

PATIENT
  Sex: Female
  Weight: 64.92 kg

DRUGS (5)
  1. AVASTIN [Suspect]
     Indication: NEOPLASM MALIGNANT
     Dosage: IN 100 ML NORMAL SALINE
     Route: 042
     Dates: start: 20101014
  2. AVASTIN [Suspect]
     Dosage: IN 100 ML NORMAL SALINE
     Route: 065
     Dates: start: 20101028
  3. AVASTIN [Suspect]
     Route: 042
     Dates: start: 20100430
  4. TARCEVA [Suspect]
     Indication: PRODUCT USED FOR UNKNOWN INDICATION
     Dosage: FOR 28 DAYS CYCLE.
     Route: 048
  5. GEMZAR [Concomitant]

REACTIONS (8)
  - Death [Fatal]
  - Weight increased [Unknown]
  - Blood pressure increased [Unknown]
  - Poor quality sleep [Recovered/Resolved]
  - Headache [Recovered/Resolved]
  - Nausea [Unknown]
  - Gastrooesophageal reflux disease [Unknown]
  - Hypoaesthesia [Unknown]
